FAERS Safety Report 5616144-2 (Version None)
Quarter: 2008Q1

REPORT INFORMATION
  Report Type: 
  Country: None (occurrence: None)
  Receive Date: 20080206
  Receipt Date: 20080131
  Transmission Date: 20080703
  Serious: Yes (Other)
  Sender: FDA-Public Use
  Company Number: US-PFIZER INC-2008010065

PATIENT
  Sex: Male
  Weight: 84.09 kg

DRUGS (2)
  1. CELEBREX [Suspect]
     Indication: ARTHRALGIA
  2. LOVASTATIN [Concomitant]

REACTIONS (3)
  - ABASIA [None]
  - DRUG INEFFECTIVE [None]
  - PAIN [None]
